FAERS Safety Report 7080424-7 (Version None)
Quarter: 2010Q4

REPORT INFORMATION
  Report Type: 
  Country: None (occurrence: None)
  Receive Date: 20101103
  Receipt Date: 20101029
  Transmission Date: 20110411
  Serious: Yes (Life-Threatening, Hospitalization)
  Sender: FDA-Public Use
  Company Number: GR-TYCO HEALTHCARE/MALLINCKRODT-T201002194

PATIENT
  Age: 88 Year
  Sex: Male
  Weight: 72 kg

DRUGS (1)
  1. OPTIRAY 350 [Suspect]
     Indication: COMPUTERISED TOMOGRAM
     Dosage: 80 ML, SINGLE
     Route: 042
     Dates: start: 20101029, end: 20101029

REACTIONS (3)
  - BRONCHOSPASM [None]
  - LARYNGEAL OEDEMA [None]
  - PULMONARY OEDEMA [None]
